FAERS Safety Report 24819255 (Version 1)
Quarter: 2025Q1

REPORT INFORMATION
  Report Type: Report from Study
  Country: US (occurrence: US)
  Receive Date: 20250108
  Receipt Date: 20250108
  Transmission Date: 20250408
  Serious: Yes (Hospitalization, Other)
  Sender: JOHNSON AND JOHNSON
  Company Number: US-JNJFOC-20241271722

PATIENT

DRUGS (1)
  1. STELARA [Suspect]
     Active Substance: USTEKINUMAB
     Indication: Crohn^s disease
     Route: 058
     Dates: start: 2019

REACTIONS (5)
  - Infusion related reaction [Recovered/Resolved]
  - Crohn^s disease [Unknown]
  - Therapy cessation [Unknown]
  - Product dose omission issue [Unknown]
  - Drug level decreased [Unknown]

NARRATIVE: CASE EVENT DATE: 20190101
